FAERS Safety Report 9140954 (Version 1)
Quarter: 2013Q1

REPORT INFORMATION
  Report Type: Spontaneous
  Country: US (occurrence: US)
  Receive Date: 20130305
  Receipt Date: 20130305
  Transmission Date: 20140127
  Serious: No
  Sender: FDA-Public Use
  Company Number: US-TEVA-386801USA

PATIENT
  Age: 64 Year
  Sex: Female
  Weight: 167.98 kg

DRUGS (4)
  1. PROAIR HFA [Suspect]
     Dosage: AS NEEDED
     Route: 055
     Dates: start: 201212, end: 20130214
  2. ASPIRIN [Concomitant]
     Route: 048
  3. CELEBREX [Concomitant]
     Route: 048
  4. DIOVAN HCT [Concomitant]
     Route: 048

REACTIONS (2)
  - Headache [Not Recovered/Not Resolved]
  - Expired drug administered [Unknown]
